FAERS Safety Report 18924931 (Version 1)
Quarter: 2021Q1

REPORT INFORMATION
  Report Type: Spontaneous
  Country: IT (occurrence: IT)
  Receive Date: 20210222
  Receipt Date: 20210222
  Transmission Date: 20210420
  Serious: Yes (Other)
  Sender: FDA-Public Use
  Company Number: IT-PFIZER INC-2021135779

PATIENT
  Age: 78 Year
  Sex: Male

DRUGS (3)
  1. EVEROLIMUS. [Suspect]
     Active Substance: EVEROLIMUS
     Indication: PANCREATIC NEUROENDOCRINE TUMOUR
  2. SUNITINIB MALATE. [Suspect]
     Active Substance: SUNITINIB MALATE
     Indication: PANCREATIC NEUROENDOCRINE TUMOUR
  3. TEMOZOLOMIDE. [Suspect]
     Active Substance: TEMOZOLOMIDE
     Indication: PANCREATIC NEUROENDOCRINE TUMOUR

REACTIONS (4)
  - Neoplasm progression [Unknown]
  - Off label use [Unknown]
  - Dehydration [Unknown]
  - Diarrhoea [Unknown]
